FAERS Safety Report 8588888-4 (Version None)
Quarter: 2012Q3

REPORT INFORMATION
  Report Type: 
  Country: None (occurrence: None)
  Receive Date: 20120813
  Receipt Date: 20120806
  Transmission Date: 20120928
  Serious: Yes (Other)
  Sender: FDA-Public Use
  Company Number: BR-PFIZER INC-2012190748

PATIENT
  Age: 59 Year
  Sex: Female
  Weight: 67 kg

DRUGS (1)
  1. LYRICA [Suspect]
     Indication: NEURALGIA
     Dosage: 75 MG, 2X/DAY
     Route: 048
     Dates: start: 20120803, end: 20120804

REACTIONS (11)
  - DIZZINESS [None]
  - SWOLLEN TONGUE [None]
  - FEELING ABNORMAL [None]
  - RETCHING [None]
  - DYSGEUSIA [None]
  - SOMNOLENCE [None]
  - DRY MOUTH [None]
  - OEDEMA PERIPHERAL [None]
  - VISION BLURRED [None]
  - DIABETES MELLITUS [None]
  - OEDEMA MOUTH [None]
